FAERS Safety Report 5885665-X (Version None)
Quarter: 2008Q3

REPORT INFORMATION
  Report Type: 
  Country: None (occurrence: None)
  Receive Date: 20080912
  Receipt Date: 20080830
  Transmission Date: 20090109
  Serious: Yes (Hospitalization)
  Sender: FDA-Public Use
  Company Number: 2005S1005931

PATIENT
  Age: 11 Year
  Sex: Male

DRUGS (2)
  1. MERCAPTAMINE BITARTRATE (MERCAPTAMINE BITARTRATE) [Suspect]
     Indication: CYSTINOSIS
     Dosage: ;ORAL  200 MG.KG;DAILY;ORAL
     Route: 048
     Dates: start: 19970925
  2. OMPRAZOLE [Concomitant]

REACTIONS (1)
  - GASTROOESOPHAGEAL REFLUX DISEASE [None]
